FAERS Safety Report 5399016-0 (Version None)
Quarter: 2007Q3

REPORT INFORMATION
  Report Type: 
  Country: None (occurrence: None)
  Receive Date: 20070723
  Receipt Date: 20070723
  Transmission Date: 20080115
  Serious: Yes (Other)
  Sender: FDA-Public Use
  Company Number: None

PATIENT
  Age: 83 Year
  Sex: Male
  Weight: 49.1 kg

DRUGS (1)
  1. MIDAZOLAM HCL [Suspect]
     Indication: GASTROINTESTINAL ENDOSCOPIC THERAPY
     Dosage: 2 MG ONCE IV
     Route: 042
     Dates: start: 20060804, end: 20060804

REACTIONS (4)
  - CARDIAC DISORDER [None]
  - DEPRESSED LEVEL OF CONSCIOUSNESS [None]
  - DYSPHAGIA [None]
  - SUPRAVENTRICULAR TACHYCARDIA [None]
